FAERS Safety Report 26188329 (Version 1)
Quarter: 2025Q4

REPORT INFORMATION
  Report Type: Spontaneous
  Country: US (occurrence: US)
  Receive Date: 20251222
  Receipt Date: 20251222
  Transmission Date: 20260117
  Serious: Yes (Hospitalization)
  Sender: BAUSCH AND LOMB
  Company Number: US-BAUSCH-BH-2025-022670

PATIENT
  Age: 18 Year
  Sex: Male

DRUGS (3)
  1. BUPROPION [Interacting]
     Active Substance: BUPROPION
     Indication: Product used for unknown indication
     Dosage: 30-300 MG
     Route: 048
  2. FENTANYL [Interacting]
     Active Substance: FENTANYL
     Indication: Sedation
     Route: 065
  3. PROPOFOL [Concomitant]
     Active Substance: PROPOFOL
     Indication: Sedation

REACTIONS (4)
  - Overdose [Unknown]
  - Intestinal pseudo-obstruction [Recovered/Resolved]
  - Drug interaction [Unknown]
  - Adverse drug reaction [Unknown]
